FAERS Safety Report 20619695 (Version 1)
Quarter: 2022Q1

REPORT INFORMATION
  Report Type: Spontaneous
  Country: CA (occurrence: CA)
  Receive Date: 20220322
  Receipt Date: 20220322
  Transmission Date: 20220423
  Serious: Yes (Other)
  Sender: FDA-Public Use
  Company Number: CA-NOVAST LABORATORIES INC.-2022NOV000232

PATIENT
  Age: 27 Year
  Sex: Male

DRUGS (1)
  1. AMPHETAMINE SULFATE [Suspect]
     Active Substance: AMPHETAMINE SULFATE
     Indication: Product used for unknown indication
     Dosage: UNK
     Route: 065

REACTIONS (5)
  - Spinal epidural haematoma [Recovered/Resolved]
  - Paraplegia [Recovered/Resolved]
  - Ataxia [Recovered/Resolved]
  - Sensory loss [Recovered/Resolved]
  - Drug abuse [Unknown]
